FAERS Safety Report 15897429 (Version 1)
Quarter: 2019Q1

REPORT INFORMATION
  Report Type: Report from Study
  Country: MX (occurrence: MX)
  Receive Date: 20190131
  Receipt Date: 20190131
  Transmission Date: 20190417
  Serious: Yes (Life-Threatening, Other)
  Sender: FDA-Public Use
  Company Number: PHHY2019MX022394

PATIENT
  Age: 57 Year
  Sex: Male
  Weight: 85 kg

DRUGS (2)
  1. DIOVAN [Suspect]
     Active Substance: VALSARTAN
     Indication: HYPERTENSION
     Dosage: 80 MG, Q12H
     Route: 048
     Dates: start: 20131127, end: 20190128
  2. DIOVAN [Suspect]
     Active Substance: VALSARTAN
     Dosage: 160 MG, UNK
     Route: 065

REACTIONS (8)
  - Cerebrovascular disorder [Unknown]
  - Hemiplegia [Unknown]
  - Metabolic syndrome [Unknown]
  - Hypertensive crisis [Unknown]
  - Blood glucose increased [Unknown]
  - Vascular rupture [Unknown]
  - Dyslipidaemia [Unknown]
  - Inappropriate schedule of product administration [Unknown]

NARRATIVE: CASE EVENT DATE: 20181104
